FAERS Safety Report 11987495 (Version 1)
Quarter: 2016Q1

REPORT INFORMATION
  Report Type: Spontaneous
  Country: US (occurrence: US)
  Receive Date: 20160202
  Receipt Date: 20160202
  Transmission Date: 20160526
  Serious: No
  Sender: FDA-Public Use
  Company Number: US-UCBSA-2015019969

PATIENT
  Age: 3 Year
  Sex: Female
  Weight: 33.2 kg

DRUGS (4)
  1. SABRIL [Suspect]
     Active Substance: VIGABATRIN
     Dosage: 500 MG ORAL POWDER FOR RECONSTITUTION: 1250 MG, 2X/DAY (BID); SUBTHERAPEUTIC DOSE OF 4.5 MG/KG/DAY
     Route: 048
     Dates: end: 20150318
  2. TOPAMAX [Concomitant]
     Active Substance: TOPIRAMATE
     Indication: PRODUCT USED FOR UNKNOWN INDICATION
     Dosage: TITRATION TO 50MG BID RECOMMENDED; X2 MONTHS
  3. KEPPRA [Suspect]
     Active Substance: LEVETIRACETAM
     Indication: SEIZURE
     Dosage: 600 MG, 2X/DAY (BID); 100 MG/ML ORAL SOLUTION
     Route: 048
     Dates: start: 20150211, end: 20150318
  4. SABRIL [Suspect]
     Active Substance: VIGABATRIN
     Indication: INFANTILE SPASMS
     Dosage: TITRATED TO A 100 MG/KG DOSE; SLOW WEANING,7ML BID -}5ML BID-}3ML BID-}1 ML BID, TO DECREASE Q2WEEKS
     Dates: start: 201309

REACTIONS (6)
  - Aggression [Unknown]
  - Abnormal behaviour [Recovered/Resolved]
  - Vomiting [Recovered/Resolved]
  - Agitation [Unknown]
  - Seizure [Unknown]
  - Insomnia [Unknown]

NARRATIVE: CASE EVENT DATE: 2015
